FAERS Safety Report 17336813 (Version 2)
Quarter: 2022Q3

REPORT INFORMATION
  Report Type: Spontaneous
  Country: PT (occurrence: PT)
  Receive Date: 20200128
  Receipt Date: 20220906
  Transmission Date: 20221027
  Serious: Yes (Other)
  Sender: FDA-Public Use
  Company Number: PT-ROCHE-2465098

PATIENT
  Age: 55 Year
  Sex: Male

DRUGS (7)
  1. CLARITHROMYCIN [Suspect]
     Active Substance: CLARITHROMYCIN
     Indication: Nocardiosis
     Dosage: UNK
     Route: 065
  2. AMPICILLIN [Suspect]
     Active Substance: AMPICILLIN
     Indication: Product used for unknown indication
     Dosage: UNK
     Route: 065
  3. CEFTRIAXONE [Suspect]
     Active Substance: CEFTRIAXONE
     Indication: Product used for unknown indication
     Dosage: UNK
     Route: 065
  4. SULFAMETHOXAZOLE\TRIMETHOPRIM [Suspect]
     Active Substance: SULFAMETHOXAZOLE\TRIMETHOPRIM
     Indication: Pulmonary nocardiosis
     Dosage: UNK
     Route: 065
  5. SULFAMETHOXAZOLE\TRIMETHOPRIM [Suspect]
     Active Substance: SULFAMETHOXAZOLE\TRIMETHOPRIM
     Indication: Nocardiosis
  6. IMIPENEM [Suspect]
     Active Substance: IMIPENEM
     Indication: Product used for unknown indication
     Dosage: UNK
     Route: 065
  7. CEFIXIME [Suspect]
     Active Substance: CEFIXIME
     Indication: Nocardiosis
     Dosage: UNK
     Route: 065

REACTIONS (17)
  - Snoring [Recovering/Resolving]
  - Respiratory failure [Unknown]
  - Pulmonary physical examination abnormal [Recovering/Resolving]
  - Cholestasis [Recovering/Resolving]
  - Crepitations [Recovering/Resolving]
  - Ocular hyperaemia [Recovering/Resolving]
  - Inflammatory marker increased [Recovering/Resolving]
  - Nasopharyngitis [Recovering/Resolving]
  - Gastrointestinal disorder [Recovering/Resolving]
  - Coagulopathy [Recovering/Resolving]
  - Abdominal pain upper [Recovering/Resolving]
  - Hepatic cytolysis [Recovering/Resolving]
  - Chills [Unknown]
  - Malaise [Recovering/Resolving]
  - Rash maculo-papular [Recovering/Resolving]
  - Pyrexia [Unknown]
  - Gastrointestinal pain [Unknown]
